FAERS Safety Report 5707170-3 (Version None)
Quarter: 2008Q2

REPORT INFORMATION
  Report Type: 
  Country: None (occurrence: None)
  Receive Date: 20080415
  Receipt Date: 20080415
  Transmission Date: 20081010
  Serious: Yes (Hospitalization)
  Sender: FDA-Public Use
  Company Number: None

PATIENT
  Age: 55 Year
  Sex: Male
  Weight: 97 kg

DRUGS (2)
  1. CYCLOBENZAPRINE HCL [Suspect]
     Indication: PAIN
     Dosage: 10MG HS PO
     Route: 048
     Dates: start: 20080131, end: 20080201
  2. TRAMADOL HCL [Suspect]
     Indication: PAIN
     Dosage: 50MG TID PO
     Route: 048
     Dates: start: 20080131, end: 20080201

REACTIONS (3)
  - CONFUSIONAL STATE [None]
  - LOSS OF CONSCIOUSNESS [None]
  - MENTAL STATUS CHANGES [None]
